FAERS Safety Report 7439571-X (Version None)
Quarter: 2011Q2

REPORT INFORMATION
  Report Type: 
  Country: None (occurrence: None)
  Receive Date: 20110427
  Receipt Date: 20110422
  Transmission Date: 20111010
  Serious: Yes (Hospitalization, Other)
  Sender: FDA-Public Use
  Company Number: US-PFIZER INC-2011088474

PATIENT
  Sex: Female

DRUGS (1)
  1. CHANTIX [Suspect]
     Dosage: UNK
     Dates: start: 20070501

REACTIONS (10)
  - CONVULSION [None]
  - AMNESIA [None]
  - SUICIDAL IDEATION [None]
  - PARANOIA [None]
  - DEPRESSION [None]
  - PANIC ATTACK [None]
  - NERVOUS SYSTEM DISORDER [None]
  - ANXIETY [None]
  - CONFUSIONAL STATE [None]
  - IRRITABILITY [None]
